FAERS Safety Report 4799733-7 (Version None)
Quarter: 2005Q4

REPORT INFORMATION
  Report Type: 
  Country: None (occurrence: None)
  Receive Date: 20051011
  Receipt Date: 20051011
  Transmission Date: 20060501
  Serious: Yes (Hospitalization)
  Sender: FDA-Public Use
  Company Number: None

PATIENT
  Age: 85 Year
  Sex: Male
  Weight: 83.4619 kg

DRUGS (4)
  1. LISINOPRIL [Suspect]
     Indication: HYPERTENSION
  2. FELODIPINE SA 5 MG PO Q DAY [Suspect]
     Indication: CORONARY ARTERY DISEASE
  3. METOPROLOL SUCCINATE EXTENDED RELEASE [Suspect]
     Indication: VENTRICULAR TACHYCARDIA
  4. ISOSORBIDE MONONITRATE [Suspect]
     Indication: CARDIAC FAILURE

REACTIONS (2)
  - HYPOTENSION [None]
  - SYNCOPE [None]
